FAERS Safety Report 11894459 (Version 1)
Quarter: 2016Q1

REPORT INFORMATION
  Report Type: Spontaneous
  Country: US (occurrence: None)
  Receive Date: 20160106
  Receipt Date: 20160106
  Transmission Date: 20160526
  Serious: Yes (Hospitalization)
  Sender: FDA-Public Use
  Company Number: None

PATIENT
  Age: 19 Year
  Sex: Male
  Weight: 63 kg

DRUGS (6)
  1. ETOPOSIDE (VP-16) [Suspect]
     Active Substance: ETOPOSIDE
     Dates: end: 20151204
  2. CYCLOPHOSPHAMIDE. [Suspect]
     Active Substance: CYCLOPHOSPHAMIDE
     Dates: end: 20151204
  3. DEXAMETHASONE. [Suspect]
     Active Substance: DEXAMETHASONE
     Dates: end: 20151116
  4. ONCASPAR [Suspect]
     Active Substance: PEGASPARGASE
     Dates: end: 20151121
  5. METHOTREXATE [Suspect]
     Active Substance: METHOTREXATE
     Dates: end: 20151120
  6. VINCRISTINE SULFATE. [Suspect]
     Active Substance: VINCRISTINE SULFATE
     Dates: end: 20151112

REACTIONS (3)
  - Pleuritic pain [None]
  - Pyrexia [None]
  - Chest X-ray abnormal [None]

NARRATIVE: CASE EVENT DATE: 20151212
